FAERS Safety Report 6805007-2 (Version None)
Quarter: 2010Q2

REPORT INFORMATION
  Report Type: 
  Country: None (occurrence: None)
  Receive Date: 20100628
  Receipt Date: 20070725
  Transmission Date: 20101027
  Serious: No
  Sender: FDA-Public Use
  Company Number: US-PFIZER INC-2007062818

PATIENT
  Age: 87 Year
  Sex: Female

DRUGS (3)
  1. NIFEDIPINE [Suspect]
     Indication: HYPERTENSION
     Route: 048
     Dates: start: 20060101
  2. AVALIDE [Concomitant]
  3. ATENOLOL [Concomitant]

REACTIONS (5)
  - CONSTIPATION [None]
  - EYE PRURITUS [None]
  - LACRIMATION INCREASED [None]
  - RASH PRURITIC [None]
  - VISION BLURRED [None]
